FAERS Safety Report 10985554 (Version 1)
Quarter: 2015Q2

REPORT INFORMATION
  Report Type: Spontaneous
  Country: None (occurrence: None)
  Receive Date: 20150403
  Receipt Date: 20150403
  Transmission Date: 20150821
  Serious: Yes (Other)
  Sender: FDA-Public Use
  Company Number: None

PATIENT
  Age: 85 Year
  Sex: Male
  Weight: 79.83 kg

DRUGS (11)
  1. WARFARIN 5 MG [Concomitant]
     Active Substance: WARFARIN
  2. LACTULOSE 10 MG [Concomitant]
  3. CALCIUM 500 MG/VITAMIN D 200 UNITS [Concomitant]
  4. PSYLLIUM 5 G [Concomitant]
  5. ALENDRONATE [Suspect]
     Active Substance: ALENDRONATE SODIUM
     Indication: OSTEOPOROSIS
     Route: 048
     Dates: start: 20140831, end: 20150319
  6. ALBUTEROL 180 MCG [Concomitant]
  7. SIMVASTATIN 10 MG [Concomitant]
     Active Substance: SIMVASTATIN
  8. FINASTERIDE 5 MG [Concomitant]
     Active Substance: FINASTERIDE
  9. TIOTROPIUM 18 MCG [Concomitant]
  10. DOCUSATE 50MG/SENNA 8.6 MG [Concomitant]
  11. OMEPRAZOLE 20 MG [Concomitant]
     Active Substance: OMEPRAZOLE

REACTIONS (2)
  - Arthralgia [None]
  - Groin pain [None]

NARRATIVE: CASE EVENT DATE: 20150319
